FAERS Safety Report 24910620 (Version 1)
Quarter: 2025Q1

REPORT INFORMATION
  Report Type: Report from Study
  Country: US (occurrence: US)
  Receive Date: 20250131
  Receipt Date: 20250131
  Transmission Date: 20250409
  Serious: No
  Sender: ACADIA PHARMACEUTICALS
  Company Number: US-ACADIA PHARMACEUTICALS INC.-ACA-2025-PIM-000721

PATIENT
  Sex: Female

DRUGS (13)
  1. NUPLAZID [Suspect]
     Active Substance: PIMAVANSERIN TARTRATE
     Indication: Parkinson^s disease
     Dosage: 10 MILLIGRAM, QD
     Route: 048
     Dates: start: 20250113
  2. NUPLAZID [Suspect]
     Active Substance: PIMAVANSERIN TARTRATE
     Dosage: 34 MILLIGRAM, QD
     Route: 048
     Dates: start: 202012, end: 20250113
  3. ATORVASTATIN [Concomitant]
     Active Substance: ATORVASTATIN
  4. MIDODRINE [Concomitant]
     Active Substance: MIDODRINE
  5. PANTOPRAZOLE [Concomitant]
     Active Substance: PANTOPRAZOLE
  6. MEMANTINE [Concomitant]
     Active Substance: MEMANTINE
  7. HAIR, SKIN + NAILS [BIOTIN] [Concomitant]
  8. BETHANECHOL [Concomitant]
     Active Substance: BETHANECHOL
  9. CALCIUM [Concomitant]
     Active Substance: CALCIUM
  10. VITAMIN D2 [Concomitant]
     Active Substance: ERGOCALCIFEROL
  11. CARBIDOPA LEVODOPA [Concomitant]
     Active Substance: CARBIDOPA\LEVODOPA
  12. VENLAFAXINE [Concomitant]
     Active Substance: VENLAFAXINE HYDROCHLORIDE
  13. FISH OIL [Concomitant]
     Active Substance: FISH OIL

REACTIONS (2)
  - Intentional dose omission [Not Recovered/Not Resolved]
  - Product use issue [Not Recovered/Not Resolved]
